FAERS Safety Report 21790838 (Version 1)
Quarter: 2022Q4

REPORT INFORMATION
  Report Type: Report from Study
  Country: US (occurrence: US)
  Receive Date: 20221228
  Receipt Date: 20221228
  Transmission Date: 20230113
  Serious: No
  Sender: FDA-Public Use
  Company Number: US-CLOVIS ONCOLOGY-CLO-2022-000724

PATIENT
  Age: 78 Year
  Sex: Male

DRUGS (4)
  1. RUBRACA [Suspect]
     Active Substance: RUCAPARIB CAMSYLATE
     Indication: Prostate cancer
     Dosage: 300 MILLIGRAM, BID
     Route: 048
  2. RUBRACA [Suspect]
     Active Substance: RUCAPARIB CAMSYLATE
     Dosage: 600 MILLIGRAM, BID
     Route: 048
     Dates: start: 20220617, end: 20220625
  3. RUBRACA [Suspect]
     Active Substance: RUCAPARIB CAMSYLATE
     Dosage: 400 MILLIGRAM, BID
     Route: 048
     Dates: start: 20220615
  4. RUBRACA [Suspect]
     Active Substance: RUCAPARIB CAMSYLATE
     Dosage: 200 MILLIGRAM, BID
     Route: 048

REACTIONS (23)
  - Weight decreased [Unknown]
  - Speech disorder [Unknown]
  - Infection [Unknown]
  - Pain [Unknown]
  - Cough [Unknown]
  - Blood glucose decreased [Unknown]
  - Palpitations [Unknown]
  - Toxicity to various agents [Unknown]
  - Constipation [Not Recovered/Not Resolved]
  - Contusion [Unknown]
  - Urinary tract infection [Unknown]
  - Memory impairment [Recovered/Resolved]
  - Abdominal pain upper [Not Recovered/Not Resolved]
  - Rash pruritic [Recovering/Resolving]
  - Diarrhoea [Unknown]
  - Decreased appetite [Unknown]
  - Dyspepsia [Unknown]
  - Nausea [Not Recovered/Not Resolved]
  - Malaise [Not Recovered/Not Resolved]
  - Dizziness [Unknown]
  - Vomiting [Unknown]
  - Fatigue [Unknown]
  - Product dose omission issue [Unknown]

NARRATIVE: CASE EVENT DATE: 20220623
